FAERS Safety Report 5131699-2 (Version None)
Quarter: 2006Q4

REPORT INFORMATION
  Report Type: 
  Country: None (occurrence: None)
  Receive Date: 20061020
  Receipt Date: 20061018
  Transmission Date: 20070319
  Serious: Yes (Death)
  Sender: FDA-Public Use
  Company Number: FR-BOEHRINGER INGELHEIM PHARMACEUTICALS, INC.-2006-DE-05502GD

PATIENT
  Age: 38 Year
  Sex: Female

DRUGS (4)
  1. NEVIRAPINE [Suspect]
     Indication: HIV INFECTION
  2. NELFINAVIR [Suspect]
     Indication: HIV INFECTION
  3. STAVUDINE [Suspect]
     Indication: HIV INFECTION
  4. COTRIMOXAZOLE [Suspect]
     Indication: PROPHYLAXIS

REACTIONS (3)
  - ACARIASIS [None]
  - ACARODERMATITIS [None]
  - CENTRAL NERVOUS SYSTEM LYMPHOMA [None]
